FAERS Safety Report 8601492-4 (Version None)
Quarter: 2012Q3

REPORT INFORMATION
  Report Type: 
  Country: None (occurrence: None)
  Receive Date: 20120806
  Receipt Date: 20120802
  Transmission Date: 20120928
  Serious: Yes (Hospitalization)
  Sender: FDA-Public Use
  Company Number: DKLU1082681

PATIENT
  Age: 9 Year
  Sex: Male

DRUGS (3)
  1. SABRIL [Suspect]
     Indication: CONVULSION
     Dosage: 500;750 MG, AM, ORAL
     Route: 048
     Dates: start: 20091111
  2. ZONISAMIDE [Concomitant]
  3. BACLOFEN [Concomitant]

REACTIONS (2)
  - PNEUMONIA [None]
  - RESPIRATORY DISTRESS [None]
